FAERS Safety Report 11540455 (Version 1)
Quarter: 2015Q3

REPORT INFORMATION
  Report Type: Spontaneous
  Country: US (occurrence: US)
  Receive Date: 20150923
  Receipt Date: 20150923
  Transmission Date: 20151125
  Serious: No
  Sender: FDA-Public Use
  Company Number: US-BEH-2014046846

PATIENT
  Sex: Female
  Weight: 78 kg

DRUGS (31)
  1. PRIVIGEN [Suspect]
     Active Substance: HUMAN IMMUNOGLOBULIN G
     Indication: IMMUNODEFICIENCY COMMON VARIABLE
     Route: 042
  2. AZITHROMYCIN [Concomitant]
     Active Substance: AZITHROMYCIN ANHYDROUS
  3. DIPHENHYDRAMINE. [Concomitant]
     Active Substance: DIPHENHYDRAMINE
  4. LIDOCAINE. [Concomitant]
     Active Substance: LIDOCAINE
  5. METHOTREXATE [Concomitant]
     Active Substance: METHOTREXATE
  6. SYNTHROID [Concomitant]
     Active Substance: LEVOTHYROXINE SODIUM
  7. NASONEX [Concomitant]
     Active Substance: MOMETASONE FUROATE
  8. FOLIC ACID. [Concomitant]
     Active Substance: FOLIC ACID
  9. CELEXA [Concomitant]
     Active Substance: CITALOPRAM HYDROBROMIDE
  10. DICYCLOMINE [Concomitant]
     Active Substance: DICYCLOMINE HYDROCHLORIDE
  11. ZYRTEC-D [Concomitant]
     Active Substance: CETIRIZINE HYDROCHLORIDE\PSEUDOEPHEDRINE HYDROCHLORIDE
  12. COREG [Concomitant]
     Active Substance: CARVEDILOL
  13. OMEGA 3 [Concomitant]
     Active Substance: OMEGA-3 FATTY ACIDS
  14. ACETAMINOPHEN. [Concomitant]
     Active Substance: ACETAMINOPHEN
  15. PREDNISONE. [Concomitant]
     Active Substance: PREDNISONE
  16. HYDROXYZINE [Concomitant]
     Active Substance: HYDROXYZINE\HYDROXYZINE HYDROCHLORIDE
  17. RESOTRIL [Concomitant]
  18. CYTOMEL [Concomitant]
     Active Substance: LIOTHYRONINE SODIUM
  19. PREDNISONE. [Concomitant]
     Active Substance: PREDNISONE
  20. SODIUM CHLORIDE. [Concomitant]
     Active Substance: SODIUM CHLORIDE
  21. LASIX [Concomitant]
     Active Substance: FUROSEMIDE
  22. POTASSIUM CHLORID [Concomitant]
  23. ABILIFY [Concomitant]
     Active Substance: ARIPIPRAZOLE
  24. PALGIC [Concomitant]
     Active Substance: CARBINOXAMINE MALEATE
  25. VITAMIN D3 [Concomitant]
     Active Substance: CHOLECALCIFEROL
  26. SINGULAIR [Concomitant]
     Active Substance: MONTELUKAST SODIUM
  27. HEPARIN [Concomitant]
     Active Substance: HEPARIN SODIUM
  28. LIDOCAINE/ PRILOCAINE [Concomitant]
  29. EPIPEN [Concomitant]
     Active Substance: EPINEPHRINE
  30. DOXYCYCLINE. [Concomitant]
     Active Substance: DOXYCYCLINE
  31. PROTONIX [Concomitant]
     Active Substance: PANTOPRAZOLE SODIUM

REACTIONS (2)
  - Urinary tract infection [Unknown]
  - Sinusitis [Unknown]
